FAERS Safety Report 13373080 (Version 1)
Quarter: 2017Q1

REPORT INFORMATION
  Report Type: Spontaneous
  Country: US (occurrence: US)
  Receive Date: 20170325
  Receipt Date: 20170325
  Transmission Date: 20170429
  Serious: Yes (Disabling)
  Sender: FDA-Public Use
  Company Number: None

PATIENT
  Age: 53 Year
  Sex: Female
  Weight: 58.5 kg

DRUGS (6)
  1. MULTI-VITAMIN [Concomitant]
     Active Substance: .ALPHA.-TOCOPHEROL ACETATE, DL-\ASCORBIC ACID\CYANOCOBALAMIN\FLUORIDE ION\FOLIC ACID\NIACIN\PYRIDOXINE\RIBOFLAVIN\THIAMINE\VITAMIN A\VITAMIN D
  2. NASONEX [Concomitant]
     Active Substance: MOMETASONE FUROATE
  3. PROAIR INHALER [Concomitant]
  4. ADVAIR 100 [Concomitant]
  5. PROBIOTIC [Concomitant]
     Active Substance: PROBIOTICS NOS
  6. LEVOFLOXACIN 500 MG ORAL TABLET [Suspect]
     Active Substance: LEVOFLOXACIN
     Indication: PNEUMONIA
     Dosage: ?          QUANTITY:10 TABLET(S);?
     Route: 048
     Dates: start: 20160617, end: 20160626

REACTIONS (6)
  - Tendon pain [None]
  - Muscle disorder [None]
  - Activities of daily living impaired [None]
  - Insomnia [None]
  - Tendonitis [None]
  - Ligament disorder [None]

NARRATIVE: CASE EVENT DATE: 20161205
